FAERS Safety Report 7543743-3 (Version None)
Quarter: 2011Q2

REPORT INFORMATION
  Report Type: 
  Country: None (occurrence: None)
  Receive Date: 20110613
  Receipt Date: 20040730
  Transmission Date: 20111010
  Serious: Yes (Hospitalization)
  Sender: FDA-Public Use
  Company Number: PHHO2004JP08505

PATIENT
  Sex: Male

DRUGS (4)
  1. SEPAMIT [Concomitant]
     Indication: ANGINA PECTORIS
  2. DIOVAN [Suspect]
     Indication: HYPERTENSION
     Dosage: 80 MG/DAY
     Route: 048
     Dates: start: 20030225, end: 20030925
  3. DILTIAZEM HCL [Concomitant]
     Indication: ANGINA PECTORIS
  4. ROCORNAL [Concomitant]
     Indication: HYPERCHOLESTEROLAEMIA

REACTIONS (5)
  - ALTERED STATE OF CONSCIOUSNESS [None]
  - HEMIPLEGIA [None]
  - DYSARTHRIA [None]
  - CEREBRAL INFARCTION [None]
  - APHASIA [None]
